FAERS Safety Report 4365652-3 (Version None)
Quarter: 2004Q2

REPORT INFORMATION
  Report Type: 
  Country: None (occurrence: None)
  Receive Date: 20040525
  Receipt Date: 20040525
  Transmission Date: 20050107
  Serious: Yes (Hospitalization)
  Sender: FDA-Public Use
  Company Number: None

PATIENT
  Sex: Female

DRUGS (1)
  1. ALTOCOR [Suspect]
     Indication: HYPERLIPIDAEMIA
     Dosage: 60 MG PO QD [BEFORE ADMISSION]
     Route: 048

REACTIONS (3)
  - FALL [None]
  - HEPATOCELLULAR DAMAGE [None]
  - RHABDOMYOLYSIS [None]
